FAERS Safety Report 11245421 (Version 1)
Quarter: 2015Q3

REPORT INFORMATION
  Report Type: Spontaneous
  Country: FR (occurrence: FR)
  Receive Date: 20150707
  Receipt Date: 20150707
  Transmission Date: 20151125
  Serious: Yes (Death, Life-Threatening)
  Sender: FDA-Public Use
  Company Number: FR-PFIZER INC-2015220370

PATIENT
  Age: 71 Year
  Sex: Male

DRUGS (2)
  1. SALAZOPYRINE [Suspect]
     Active Substance: SULFASALAZINE
     Indication: RHEUMATIC DISORDER
     Dosage: UNK
     Route: 048
  2. SALAZOPYRINE [Suspect]
     Active Substance: SULFASALAZINE
     Indication: REITER^S SYNDROME
     Dosage: DOSE INCREASED
     Dates: start: 201403, end: 201404

REACTIONS (1)
  - Acute lymphocytic leukaemia [Fatal]

NARRATIVE: CASE EVENT DATE: 20140416
